FAERS Safety Report 13097417 (Version 2)
Quarter: 2017Q1

REPORT INFORMATION
  Report Type: Report from Study
  Country: IT (occurrence: IT)
  Receive Date: 20170109
  Receipt Date: 20170125
  Transmission Date: 20170428
  Serious: Yes (Other)
  Sender: FDA-Public Use
  Company Number: IT-TEVA-727114ACC

PATIENT
  Age: 80 Year
  Sex: Female

DRUGS (1)
  1. DULOXETINE HYDROCHLORIDE. [Suspect]
     Active Substance: DULOXETINE HYDROCHLORIDE
     Indication: POLYNEUROPATHY
     Route: 048
     Dates: start: 20160724, end: 20160724

REACTIONS (3)
  - Headache [Recovering/Resolving]
  - Gastric disorder [Unknown]
  - Vomiting [Recovering/Resolving]

NARRATIVE: CASE EVENT DATE: 20160724
